FAERS Safety Report 8311407-4 (Version None)
Quarter: 2012Q2

REPORT INFORMATION
  Report Type: 
  Country: None (occurrence: None)
  Receive Date: 20120425
  Receipt Date: 20120113
  Transmission Date: 20120825
  Serious: No
  Sender: FDA-Public Use
  Company Number: US-MYLANLABS-2011S1025936

PATIENT
  Age: 76 Year
  Sex: Female
  Weight: 65.77 kg

DRUGS (3)
  1. DUONEB [Suspect]
     Indication: CHRONIC OBSTRUCTIVE PULMONARY DISEASE
     Route: 055
     Dates: start: 20110501
  2. LIALDA [Concomitant]
     Dates: start: 20111212
  3. ADVAIR DISKUS 100/50 [Concomitant]

REACTIONS (3)
  - URTICARIA [None]
  - RASH MACULAR [None]
  - RASH PRURITIC [None]
